FAERS Safety Report 8483250-7 (Version None)
Quarter: 2012Q3

REPORT INFORMATION
  Report Type: 
  Country: None (occurrence: None)
  Receive Date: 20120702
  Receipt Date: 20120626
  Transmission Date: 20120928
  Serious: Yes (Hospitalization)
  Sender: FDA-Public Use
  Company Number: CA-AMGEN-CANCT2012025799

PATIENT
  Age: 56 Year
  Sex: Male

DRUGS (6)
  1. VITAMIN D [Concomitant]
     Dosage: UNK UNK, BID
     Route: 048
     Dates: start: 20100723
  2. CALCIUM [Concomitant]
     Dosage: 500 MG, BID
     Route: 048
     Dates: start: 20100723
  3. ACETAMINOPHEN [Concomitant]
     Dosage: 500 MG, PRN
     Route: 048
     Dates: start: 20100725
  4. HYDROMORPHONE HCL [Concomitant]
     Dosage: UNK
     Route: 048
     Dates: start: 20100519
  5. DENOSUMAB [Suspect]
     Indication: BONE GIANT CELL TUMOUR
     Dosage: UNK UNK, Q4WK
     Route: 058
     Dates: start: 20100723
  6. PREGABALIN [Concomitant]
     Dosage: 150 MG, BID
     Route: 048
     Dates: start: 20120301

REACTIONS (1)
  - BACK PAIN [None]
